FAERS Safety Report 9519278 (Version 1)
Quarter: 2013Q3

REPORT INFORMATION
  Report Type: Spontaneous
  Country: CO (occurrence: CO)
  Receive Date: 20130912
  Receipt Date: 20130912
  Transmission Date: 20140515
  Serious: Yes (Hospitalization)
  Sender: FDA-Public Use
  Company Number: CO-UCBSA-097606

PATIENT
  Age: 81 Year
  Sex: Female

DRUGS (4)
  1. ROTIGOTINE [Suspect]
     Indication: PARKINSON^S DISEASE
     Dosage: DOSE: 2MG/24 HOURS
     Route: 062
     Dates: start: 20130419, end: 20130720
  2. AMANTADINA [Concomitant]
     Dosage: DOSE: 100 MG/24 HOURS
  3. AKINETON [Concomitant]
  4. ENALAPRIL [Concomitant]
     Dosage: DOSE: 24MG/24 HOURS

REACTIONS (3)
  - Somnolence [Unknown]
  - Dizziness [Unknown]
  - Balance disorder [Unknown]
